FAERS Safety Report 4910943-8 (Version None)
Quarter: 2006Q1

REPORT INFORMATION
  Report Type: 
  Country: None (occurrence: None)
  Receive Date: 20060214
  Receipt Date: 20051025
  Transmission Date: 20060701
  Serious: Yes (Hospitalization, Other)
  Sender: FDA-Public Use
  Company Number: US-MERCK-0510USA09038

PATIENT
  Age: 69 Year
  Sex: Female
  Weight: 82 kg

DRUGS (13)
  1. VIOXX [Suspect]
     Indication: ARTHRALGIA
     Route: 048
     Dates: start: 20010501, end: 20040901
  2. ASPIRIN [Concomitant]
     Route: 065
  3. PLAVIX [Concomitant]
     Route: 065
     Dates: start: 20010101, end: 20050101
  4. ZOCOR [Concomitant]
     Route: 048
  5. LIPITOR [Concomitant]
     Route: 065
  6. NEXIUM [Concomitant]
     Route: 065
  7. ACEON [Concomitant]
     Route: 065
     Dates: start: 20000101, end: 20050101
  8. DIOVAN [Concomitant]
     Route: 065
     Dates: start: 20010101, end: 20050101
  9. ZOLOFT [Concomitant]
     Route: 065
     Dates: start: 20000101, end: 20050101
  10. ADVIL [Concomitant]
     Route: 065
     Dates: start: 19940101
  11. MOTRIN [Concomitant]
     Route: 065
     Dates: start: 19990101
  12. DYAZIDE [Concomitant]
     Route: 065
     Dates: start: 19950101, end: 20050101
  13. MINIPRESS [Concomitant]
     Route: 065
     Dates: start: 20000101, end: 20030101

REACTIONS (24)
  - ACUTE CORONARY SYNDROME [None]
  - ACUTE MYOCARDIAL INFARCTION [None]
  - AMNESIA [None]
  - ANGINA UNSTABLE [None]
  - ARTHRALGIA [None]
  - CARDIOVASCULAR DISORDER [None]
  - CEREBROVASCULAR ACCIDENT [None]
  - CONVULSION [None]
  - CORONARY ARTERY DISEASE [None]
  - DYSPHAGIA [None]
  - DYSTHYMIC DISORDER [None]
  - FALL [None]
  - GASTRIC DISORDER [None]
  - GASTROOESOPHAGEAL REFLUX DISEASE [None]
  - HYPERTENSIVE CRISIS [None]
  - HYPERTENSIVE ENCEPHALOPATHY [None]
  - HYPOAESTHESIA [None]
  - MUSCULOSKELETAL CHEST PAIN [None]
  - MYOCARDIAL INFARCTION [None]
  - SHOULDER PAIN [None]
  - SPINAL OSTEOARTHRITIS [None]
  - SWELLING [None]
  - THROMBOSIS [None]
  - URINE ABNORMALITY [None]
